FAERS Safety Report 24246999 (Version 1)
Quarter: 2024Q3

REPORT INFORMATION
  Report Type: Report from Study
  Country: AU (occurrence: None)
  Receive Date: 20240826
  Receipt Date: 20240826
  Transmission Date: 20241016
  Serious: Yes (Other)
  Sender: ASTRAZENECA
  Company Number: 2021A695046

PATIENT
  Sex: Female

DRUGS (2)
  1. ASTRAZENECA COVID-19 VACCINE [Suspect]
     Active Substance: AZD-1222
     Route: 030
  2. FASENRA [Suspect]
     Active Substance: BENRALIZUMAB
     Indication: Asthma
     Route: 058

REACTIONS (5)
  - Transient ischaemic attack [Unknown]
  - Speech disorder [Unknown]
  - Muscular weakness [Unknown]
  - Migraine [Unknown]
  - Blood glucose decreased [Unknown]
